FAERS Safety Report 7320275-9 (Version None)
Quarter: 2011Q1

REPORT INFORMATION
  Report Type: 
  Country: None (occurrence: None)
  Receive Date: 20110228
  Receipt Date: 20110223
  Transmission Date: 20110831
  Serious: Yes (Hospitalization)
  Sender: FDA-Public Use
  Company Number: US-PFIZER INC-2011040347

PATIENT
  Age: 47 Year
  Sex: Male

DRUGS (3)
  1. AMBRISENTAN [Suspect]
     Dosage: 5 MG, UNK
     Route: 048
     Dates: start: 20101001
  2. NORVASC [Suspect]
     Dosage: UNK
  3. LEVAQUIN [Suspect]

REACTIONS (2)
  - DYSPNOEA [None]
  - URTICARIA [None]
